FAERS Safety Report 22335627 (Version 1)
Quarter: 2023Q2

REPORT INFORMATION
  Report Type: Spontaneous
  Country: ES (occurrence: ES)
  Receive Date: 20230518
  Receipt Date: 20230518
  Transmission Date: 20230722
  Serious: Yes (Life-Threatening, Hospitalization, Other)
  Sender: FDA-Public Use
  Company Number: ES-AEMPS-1364604

PATIENT
  Age: 68 Year
  Sex: Male
  Weight: 60 kg

DRUGS (5)
  1. DOCETAXEL [Suspect]
     Active Substance: DOCETAXEL
     Indication: Prostate cancer stage IV
     Dosage: 121 MILLIGRAM (1 TOTAL)
     Route: 042
     Dates: start: 20230419, end: 20230419
  2. ABIRATERONE [Concomitant]
     Active Substance: ABIRATERONE
     Indication: Prostate cancer stage IV
     Dosage: 1000 MILLIGRAM FOR A DAY
     Route: 048
     Dates: start: 20230314
  3. ONDANSETRON [Concomitant]
     Active Substance: ONDANSETRON
     Indication: Product used for unknown indication
     Dosage: 8 MILLIGRAM (8MG SINGLE DOSE)
     Route: 042
     Dates: start: 20230419, end: 20230419
  4. PREDNISONE [Concomitant]
     Active Substance: PREDNISONE
     Indication: Prostate cancer stage IV
     Dosage: UNK (5MG DAILY + EXTRA DOSE 10MG ON 04/19)
     Route: 048
     Dates: start: 20230314
  5. DEXCHLORPHENIRAMINE MALEATE [Concomitant]
     Active Substance: DEXCHLORPHENIRAMINE MALEATE
     Indication: Product used for unknown indication
     Dosage: 5 MILLIGRAM, SINGLE DOSE
     Route: 042
     Dates: start: 20230419, end: 20230419

REACTIONS (2)
  - Mucosal inflammation [Recovering/Resolving]
  - Agranulocytosis [Recovered/Resolved]

NARRATIVE: CASE EVENT DATE: 20230426
